FAERS Safety Report 8171538-9 (Version None)
Quarter: 2012Q1

REPORT INFORMATION
  Report Type: 
  Country: None (occurrence: None)
  Receive Date: 20120104
  Receipt Date: 20111208
  Transmission Date: 20120608
  Serious: No
  Sender: FDA-Public Use
  Company Number: 2011HGS-002773

PATIENT
  Age: 66 Year
  Sex: Female
  Weight: 58.0604 kg

DRUGS (6)
  1. LEVOTHYROXINE SODIUM [Concomitant]
  2. BENLYSTA [Suspect]
     Indication: SYSTEMIC LUPUS ERYTHEMATOSUS
     Dosage: 10 MG/KG, 1 IN 28 D, INTRAVENOUS DRIP
     Route: 041
     Dates: start: 20111027
  3. DILTIAZEM [Concomitant]
  4. TRAMADOL HCL [Concomitant]
  5. PREDNISONE TAB [Concomitant]
  6. CYMBALTA (ANTIDEPRESSANTS) (DULOXETINE HYDROCHLORIDE) [Concomitant]

REACTIONS (1)
  - BREAST CANCER [None]
